FAERS Safety Report 10152181 (Version 1)
Quarter: 2014Q2

REPORT INFORMATION
  Report Type: Spontaneous
  Country: US (occurrence: US)
  Receive Date: 20140505
  Receipt Date: 20140505
  Transmission Date: 20141212
  Serious: Yes (Other)
  Sender: FDA-Public Use
  Company Number: US-AMGEN-USASP2014032063

PATIENT
  Age: 26 Year
  Sex: Male

DRUGS (1)
  1. ENBREL [Suspect]
     Indication: PSORIATIC ARTHROPATHY
     Dosage: 50 MG, QWK
     Route: 065
     Dates: start: 201404

REACTIONS (7)
  - Swelling face [Not Recovered/Not Resolved]
  - Tonsillar hypertrophy [Not Recovered/Not Resolved]
  - Urticaria [Recovered/Resolved]
  - Hot flush [Recovered/Resolved]
  - Feeling cold [Recovered/Resolved]
  - Oropharyngeal pain [Not Recovered/Not Resolved]
  - Injection site erythema [Recovered/Resolved]
